FAERS Safety Report 23264166 (Version 6)
Quarter: 2024Q1

REPORT INFORMATION
  Report Type: Report from Study
  Country: CA (occurrence: CA)
  Receive Date: 20231205
  Receipt Date: 20240328
  Transmission Date: 20240409
  Serious: Yes (Hospitalization, Other)
  Sender: FDA-Public Use
  Company Number: CA-JNJFOC-20231044083

PATIENT
  Age: 58 Year
  Sex: Male
  Weight: 71 kg

DRUGS (3)
  1. REMICADE [Suspect]
     Active Substance: INFLIXIMAB
     Indication: Crohn^s disease
     Dosage: BATCH: 23C076, EXPIRY: 30-APR-2026
     Route: 041
     Dates: start: 20110121
  2. REMICADE [Suspect]
     Active Substance: INFLIXIMAB
     Dosage: DOSE REDUCED
     Route: 041
  3. VITAMIN B12 [Concomitant]
     Active Substance: CYANOCOBALAMIN

REACTIONS (8)
  - Intestinal obstruction [Not Recovered/Not Resolved]
  - Pancreatitis [Unknown]
  - Hypomagnesaemia [Unknown]
  - Crohn^s disease [Unknown]
  - Intestinal resection [Recovering/Resolving]
  - Headache [Not Recovered/Not Resolved]
  - Oropharyngeal pain [Not Recovered/Not Resolved]
  - Drug ineffective [Unknown]

NARRATIVE: CASE EVENT DATE: 20231127
